FAERS Safety Report 7508560-9 (Version None)
Quarter: 2011Q2

REPORT INFORMATION
  Report Type: 
  Country: None (occurrence: None)
  Receive Date: 20110527
  Receipt Date: 20110512
  Transmission Date: 20111010
  Serious: Yes (Other)
  Sender: FDA-Public Use
  Company Number: US-JNJFOC-20110506532

PATIENT
  Sex: Female
  Weight: 48.99 kg

DRUGS (6)
  1. REMICADE [Suspect]
     Indication: CROHN'S DISEASE
     Route: 042
     Dates: start: 20110301
  2. OMEPRAZOLE [Concomitant]
     Indication: HYPERCHLORHYDRIA
     Route: 048
     Dates: start: 20090101
  3. HYOMAX [Concomitant]
     Indication: ABDOMINAL PAIN
     Route: 048
     Dates: start: 20100101
  4. ZOFRAN [Concomitant]
     Route: 048
     Dates: start: 20101101
  5. ORTHO TRI-CYCLEN [Concomitant]
     Indication: VAGINAL HAEMORRHAGE
     Route: 048
     Dates: start: 20101101
  6. SOLU-MEDROL [Concomitant]
     Indication: PREMEDICATION

REACTIONS (8)
  - GAIT DISTURBANCE [None]
  - ARTHRALGIA [None]
  - MALAISE [None]
  - HAEMOGLOBIN DECREASED [None]
  - BLOOD IRON DECREASED [None]
  - INFUSION RELATED REACTION [None]
  - INFLUENZA LIKE ILLNESS [None]
  - BONE PAIN [None]
